FAERS Safety Report 9058367 (Version 1)
Quarter: 2013Q1

REPORT INFORMATION
  Report Type: Spontaneous
  Country: US (occurrence: US)
  Receive Date: 20130211
  Receipt Date: 20130211
  Transmission Date: 20140127
  Serious: Yes (Other)
  Sender: FDA-Public Use
  Company Number: US-BAYER-2013-015841

PATIENT
  Age: 49 Year
  Sex: Female

DRUGS (8)
  1. YAZ [Suspect]
     Indication: MENSTRUAL CYCLE MANAGEMENT
  2. YAZ [Suspect]
     Indication: AFFECTIVE DISORDER
  3. GIANVI [Suspect]
  4. CITALOPRAM [Concomitant]
     Dosage: 400 MG, UNK
  5. IBUPROFEN [Concomitant]
     Dosage: 800 MG, UNK
  6. ASPIRIN (E.C.) [ACETYLSALICYLIC ACID] [Concomitant]
     Dosage: 81 MG, UNK
     Route: 048
  7. VITAMIN D NOS [Concomitant]
  8. LORTAB [HYDROCODONE BITARTRATE,PARACETAMOL,PROMETHAZINE HYDROCHLOR [Concomitant]
     Indication: PAIN

REACTIONS (2)
  - Deep vein thrombosis [Recovering/Resolving]
  - Cerebrovascular accident [None]
